FAERS Safety Report 20797952 (Version 3)
Quarter: 2022Q3

REPORT INFORMATION
  Report Type: Report from Study
  Country: US (occurrence: US)
  Receive Date: 20220506
  Receipt Date: 20220803
  Transmission Date: 20221027
  Serious: No
  Sender: FDA-Public Use
  Company Number: US-BRISTOL-MYERS SQUIBB COMPANY-2022-018912

PATIENT
  Age: 59 Year
  Sex: Female
  Weight: 58.97 kg

DRUGS (1)
  1. ORENCIA [Suspect]
     Active Substance: ABATACEPT
     Indication: Rheumatoid arthritis
     Route: 058
     Dates: start: 20220315

REACTIONS (6)
  - Device defective [Unknown]
  - Alopecia [Unknown]
  - Eye pruritus [Unknown]
  - Joint swelling [Unknown]
  - Arthralgia [Unknown]
  - Device malfunction [Unknown]

NARRATIVE: CASE EVENT DATE: 20220706
